FAERS Safety Report 7298120-X (Version None)
Quarter: 2011Q1

REPORT INFORMATION
  Report Type: 
  Country: None (occurrence: None)
  Receive Date: 20110217
  Receipt Date: 20110209
  Transmission Date: 20110831
  Serious: Yes (Death, Other)
  Sender: FDA-Public Use
  Company Number: FR-JNJFOC-20110203429

PATIENT

DRUGS (7)
  1. COLOFOAM [Suspect]
     Indication: DRUG EXPOSURE DURING PREGNANCY
     Route: 064
  2. OROCAL [Suspect]
     Indication: DRUG EXPOSURE DURING PREGNANCY
     Route: 064
  3. REMICADE [Suspect]
     Route: 064
  4. NEXIUM [Suspect]
     Indication: DRUG EXPOSURE DURING PREGNANCY
     Route: 064
  5. FIVASA [Suspect]
     Indication: DRUG EXPOSURE DURING PREGNANCY
     Route: 064
  6. REMICADE [Suspect]
     Indication: DRUG EXPOSURE DURING PREGNANCY
     Route: 064
  7. SOLUPRED [Suspect]
     Indication: DRUG EXPOSURE DURING PREGNANCY
     Route: 064

REACTIONS (3)
  - LISTERIOSIS [None]
  - PREMATURE BABY [None]
  - INTRA-UTERINE DEATH [None]
